FAERS Safety Report 19520755 (Version 1)
Quarter: 2021Q3

REPORT INFORMATION
  Report Type: Report from Study
  Country: JP (occurrence: JP)
  Receive Date: 20210712
  Receipt Date: 20210712
  Transmission Date: 20211014
  Serious: Yes (Hospitalization)
  Sender: FDA-Public Use
  Company Number: JP-CELGENEUS-JPN-20210607806

PATIENT
  Age: 70 Year
  Sex: Male
  Weight: 49.1 kg

DRUGS (94)
  1. LANSOPRAZOLE. [Concomitant]
     Active Substance: LANSOPRAZOLE
     Indication: PROPHYLAXIS AGAINST GASTROINTESTINAL ULCER
     Dosage: 30 MILLIGRAM
     Route: 048
     Dates: start: 20140716, end: 20210223
  2. LYRICA [Concomitant]
     Active Substance: PREGABALIN
     Indication: POST HERPETIC NEURALGIA
     Dosage: 50 MILLIGRAM
     Route: 048
     Dates: start: 20101216, end: 20210223
  3. NEOSTELIN GREEN [Concomitant]
     Active Substance: BENZETHONIUM CHLORIDE
     Indication: STOMATITIS
     Dosage: UNKNOWN
     Route: 061
     Dates: start: 20200327, end: 20210209
  4. OPSO [Concomitant]
     Active Substance: MORPHINE HYDROCHLORIDE
     Indication: POST HERPETIC NEURALGIA
     Route: 048
     Dates: start: 20201020
  5. G?LASTA [Concomitant]
     Active Substance: PEGFILGRASTIM
     Indication: NEUTROPENIA
     Route: 058
     Dates: start: 20200407, end: 20200407
  6. G?LASTA [Concomitant]
     Active Substance: PEGFILGRASTIM
     Indication: STREPTOCOCCAL SEPSIS
     Route: 058
     Dates: start: 20200602, end: 20200602
  7. G?LASTA [Concomitant]
     Active Substance: PEGFILGRASTIM
     Route: 058
     Dates: start: 20200714, end: 20200714
  8. HIZENTRA [Concomitant]
     Active Substance: HUMAN IMMUNOGLOBULIN G
     Indication: NEUTROPENIA
     Route: 058
     Dates: start: 20201222, end: 20201222
  9. SOLU?CORTEF [Concomitant]
     Active Substance: HYDROCORTISONE SODIUM SUCCINATE
     Indication: STREPTOCOCCAL SEPSIS
     Dosage: 100 MILLIGRAM
     Route: 041
     Dates: start: 20210224, end: 20210224
  10. FUNGUARD [Concomitant]
     Active Substance: MICAFUNGIN SODIUM
     Indication: STREPTOCOCCAL SEPSIS
     Dosage: 300 MILLIGRAM
     Route: 041
     Dates: start: 20210224, end: 20210303
  11. DARBEPOETIN?ALFA [Concomitant]
     Dosage: 120 MICROGRAM
     Route: 058
     Dates: start: 20210402, end: 20210402
  12. PNEUMOVAX 23 [Concomitant]
     Active Substance: PNEUMOCOCCAL VACCINE, POLYVALENT 23
     Indication: INFECTION PROPHYLAXIS
     Dosage: 0.5 MILLILITER
     Route: 030
     Dates: start: 20210403, end: 20210403
  13. DARATUMUMAB [Suspect]
     Active Substance: DARATUMUMAB
     Dosage: UNKNOWN
     Route: 065
  14. BACTRAMIN [Concomitant]
     Active Substance: SULFAMETHOXAZOLE\TRIMETHOPRIM
     Route: 048
     Dates: start: 20210308, end: 20210324
  15. ACICLOVIR [Concomitant]
     Active Substance: ACYCLOVIR
     Dosage: 200 MILLIGRAM
     Route: 048
     Dates: start: 20210226, end: 20210308
  16. G?LASTA [Concomitant]
     Active Substance: PEGFILGRASTIM
     Route: 058
     Dates: start: 20200804, end: 20200804
  17. SOLACET F [Concomitant]
     Active Substance: CALCIUM CHLORIDE\POTASSIUM CHLORIDE\SODIUM ACETATE\SODIUM CHLORIDE
     Dosage: 1000 MILLILITER
     Route: 041
     Dates: start: 20210304, end: 20210305
  18. VALIXA [Concomitant]
     Active Substance: VALGANCICLOVIR
     Indication: INFECTION PROPHYLAXIS
     Dosage: 900 MILLIGRAM
     Route: 048
     Dates: start: 20210303, end: 20210303
  19. BACTRAMIN [Concomitant]
     Active Substance: SULFAMETHOXAZOLE\TRIMETHOPRIM
     Dosage: 0.5 TABLET
     Route: 048
     Dates: start: 20210226, end: 20210307
  20. BACTRAMIN [Concomitant]
     Active Substance: SULFAMETHOXAZOLE\TRIMETHOPRIM
     Route: 048
     Dates: start: 20210403
  21. ACICLOVIR [Concomitant]
     Active Substance: ACYCLOVIR
     Indication: INFECTION PROPHYLAXIS
     Dosage: 200 MILLIGRAM
     Route: 048
     Dates: start: 20140424, end: 20210223
  22. G?LASTA [Concomitant]
     Active Substance: PEGFILGRASTIM
     Dosage: 3.6 MILLIGRAM
     Route: 058
     Dates: start: 20210409, end: 20210409
  23. FILGRASTIM BS [Concomitant]
     Active Substance: FILGRASTIM
     Indication: STREPTOCOCCAL SEPSIS
     Dosage: 75 MICROGRAM
     Route: 058
     Dates: start: 20210224, end: 20210305
  24. VANCOMYCIN [Concomitant]
     Active Substance: VANCOMYCIN
     Dosage: 1 GRAM
     Route: 041
     Dates: start: 20210226, end: 20210301
  25. CC?4047 [Suspect]
     Active Substance: POMALIDOMIDE
     Dosage: UNKNOWN
     Route: 048
  26. DEXAMETHASONE ORAL [Suspect]
     Active Substance: DEXAMETHASONE
     Indication: PLASMA CELL MYELOMA
     Route: 048
     Dates: start: 20200324, end: 20200414
  27. DEXAMETHASONE ORAL [Suspect]
     Active Substance: DEXAMETHASONE
     Dosage: UNKNOWN
     Route: 048
  28. DARATUMUMAB [Suspect]
     Active Substance: DARATUMUMAB
     Indication: PLASMA CELL MYELOMA
     Route: 041
     Dates: start: 20200324, end: 20200414
  29. AMLODIN [Concomitant]
     Active Substance: AMLODIPINE BESYLATE
     Indication: HYPERTENSION
     Dosage: 5 MILLIGRAM
     Route: 048
     Dates: start: 20101210, end: 20210223
  30. MONTELUKAST [Concomitant]
     Active Substance: MONTELUKAST SODIUM
     Indication: PREMEDICATION
     Route: 048
     Dates: start: 20200324, end: 20210209
  31. NEORESTAR [Concomitant]
     Active Substance: CHLORPHENIRAMINE MALEATE
     Dosage: 10 MILLIGRAM
     Route: 048
     Dates: start: 20210326
  32. G?LASTA [Concomitant]
     Active Substance: PEGFILGRASTIM
     Route: 058
     Dates: start: 20201117, end: 20201117
  33. G?LASTA [Concomitant]
     Active Substance: PEGFILGRASTIM
     Route: 058
     Dates: start: 20210209, end: 20210209
  34. FILGRASTIM BS [Concomitant]
     Active Substance: FILGRASTIM
     Dosage: 75 MICROGRAM
     Route: 058
     Dates: start: 20210308, end: 20210311
  35. FILGRASTIM BS [Concomitant]
     Active Substance: FILGRASTIM
     Dosage: 75 MICROGRAM
     Route: 058
     Dates: start: 20210317, end: 20210318
  36. OMEPRAZOLE. [Concomitant]
     Active Substance: OMEPRAZOLE
     Dosage: 40 MILLIGRAM
     Route: 041
     Dates: start: 20210225, end: 20210225
  37. FUROSEMIDE. [Concomitant]
     Active Substance: FUROSEMIDE
     Indication: STREPTOCOCCAL SEPSIS
     Dosage: 20 MILLIGRAM
     Route: 041
     Dates: start: 20210225, end: 20210225
  38. DARBEPOETIN?ALFA [Concomitant]
     Indication: NEUTROPENIA
     Dosage: 120 MICROGRAM
     Route: 058
     Dates: start: 20210326, end: 20210326
  39. VALIXA [Concomitant]
     Active Substance: VALGANCICLOVIR
     Route: 048
     Dates: start: 20210304, end: 20210324
  40. NIFLEC [Concomitant]
     Active Substance: POLYETHYLENE GLYCOLS\POTASSIUM CHLORIDE\SODIUM BICARBONATE\SODIUM CHLORIDE\SODIUM SULFATE
     Indication: COLONOSCOPY
     Dosage: 2 LITERS
     Route: 048
     Dates: start: 20210205, end: 20210205
  41. DEXAMETHASONE ORAL [Suspect]
     Active Substance: DEXAMETHASONE
     Route: 048
     Dates: start: 20210601, end: 20210622
  42. BACTRAMIN [Concomitant]
     Active Substance: SULFAMETHOXAZOLE\TRIMETHOPRIM
     Indication: INFECTION PROPHYLAXIS
     Dosage: 0.5 TABLET
     Route: 048
     Dates: start: 20130424, end: 20210223
  43. BAYASPIRIN [Concomitant]
     Active Substance: ASPIRIN
     Dosage: 100 MILLIGRAM
     Route: 048
     Dates: start: 20210209, end: 20210223
  44. CALONAL [Concomitant]
     Active Substance: ACETAMINOPHEN
     Route: 048
     Dates: start: 20210326
  45. ISOTONIC SODIUM CHLORIDE SOLUTION [Concomitant]
     Active Substance: SODIUM CHLORIDE
     Indication: HYPOTENSION
     Route: 041
     Dates: start: 20200414, end: 20200414
  46. G?LASTA [Concomitant]
     Active Substance: PEGFILGRASTIM
     Route: 058
     Dates: start: 20201013, end: 20201013
  47. VENOGLOBULIN IH [Concomitant]
     Active Substance: HUMAN IMMUNOGLOBULIN G
     Indication: INFECTION PROPHYLAXIS
     Route: 041
     Dates: start: 20201013, end: 20201013
  48. HIZENTRA [Concomitant]
     Active Substance: HUMAN IMMUNOGLOBULIN G
     Indication: STREPTOCOCCAL SEPSIS
     Dosage: 100 MILLIGRAM
     Route: 058
     Dates: start: 20210224, end: 20210225
  49. GLUCOSE INJECTION [Concomitant]
     Active Substance: DEXTROSE
     Indication: STREPTOCOCCAL SEPSIS
     Dosage: 500 MILLILITER
     Route: 041
     Dates: start: 20210226, end: 20210227
  50. GLUCONSAN K [Concomitant]
     Active Substance: POTASSIUM GLUCONATE
     Indication: MINERAL SUPPLEMENTATION
     Dosage: 9 GRAM
     Route: 048
     Dates: start: 20210308, end: 20210312
  51. VALIXA [Concomitant]
     Active Substance: VALGANCICLOVIR
     Dosage: 450 MILLIGRAM
     Route: 048
     Dates: start: 20210402
  52. PARIET [Concomitant]
     Active Substance: RABEPRAZOLE SODIUM
     Indication: PROPHYLAXIS AGAINST GASTROINTESTINAL ULCER
     Dosage: 10 MILLIGRAM
     Route: 048
     Dates: start: 20210403
  53. TOARASET [Concomitant]
     Active Substance: ACETAMINOPHEN\TRAMADOL HYDROCHLORIDE
     Indication: HERPES ZOSTER
     Dosage: 3 TABLET
     Route: 048
     Dates: start: 20210409
  54. SCOPOLAMINE?BUTYLBROMIDE [Concomitant]
     Indication: COLONOSCOPY
     Dosage: 10 MILLIGRAM
     Route: 030
     Dates: start: 20210205, end: 20210205
  55. PANVITAN [Concomitant]
     Active Substance: VITAMINS
     Indication: VITAMIN SUPPLEMENTATION
     Dosage: 1.8 GRAM
     Route: 048
     Dates: start: 20210304, end: 20210324
  56. CC?4047 [Suspect]
     Active Substance: POMALIDOMIDE
     Dosage: 2 MILLIGRAM
     Route: 048
     Dates: start: 20210601, end: 20210621
  57. MONTELUKAST [Concomitant]
     Active Substance: MONTELUKAST SODIUM
     Route: 048
     Dates: start: 20210326
  58. NEORESTAR [Concomitant]
     Active Substance: CHLORPHENIRAMINE MALEATE
     Dosage: 10 MILLIGRAM
     Route: 041
     Dates: start: 20210325, end: 20210325
  59. G?LASTA [Concomitant]
     Active Substance: PEGFILGRASTIM
     Route: 058
     Dates: start: 20200915, end: 20200915
  60. G?LASTA [Concomitant]
     Active Substance: PEGFILGRASTIM
     Dosage: 3.6 MILLIGRAM
     Route: 058
     Dates: start: 20210322, end: 20210322
  61. FILGRASTIM BS [Concomitant]
     Active Substance: FILGRASTIM
     Indication: NEUTROPENIA
     Route: 058
     Dates: start: 20201013, end: 20201013
  62. TAZOPIPE [Concomitant]
     Active Substance: PIPERACILLIN SODIUM\TAZOBACTAM SODIUM
     Indication: STREPTOCOCCAL SEPSIS
     Dosage: 4.5 GRAM
     Route: 041
     Dates: start: 20210224, end: 20210224
  63. TAZOPIPE [Concomitant]
     Active Substance: PIPERACILLIN SODIUM\TAZOBACTAM SODIUM
     Dosage: 9 GRAM
     Route: 041
     Dates: start: 20210225, end: 20210308
  64. VANCOMYCIN [Concomitant]
     Active Substance: VANCOMYCIN
     Indication: STREPTOCOCCAL SEPSIS
     Dosage: 1.5 GRAM
     Route: 041
     Dates: start: 20210225, end: 20210225
  65. SOLACET D [Concomitant]
     Indication: SEPSIS
     Dosage: 500 MILLILITER
     Route: 041
     Dates: start: 20210306, end: 20210308
  66. DARBEPOETIN?ALFA [Concomitant]
     Indication: STREPTOCOCCAL SEPSIS
     Dosage: 60 MICROGRAM
     Route: 058
     Dates: start: 20210319, end: 20210319
  67. DARATUMUMAB [Suspect]
     Active Substance: DARATUMUMAB
     Route: 065
     Dates: start: 20210601, end: 20210601
  68. BAYASPIRIN [Concomitant]
     Active Substance: ASPIRIN
     Indication: THROMBOSIS PROPHYLAXIS
     Dosage: 100 MILLIGRAM
     Route: 048
     Dates: start: 20130611, end: 20210201
  69. LYRICA [Concomitant]
     Active Substance: PREGABALIN
     Dosage: 2 TABLET
     Route: 048
     Dates: start: 20210409
  70. NEORESTAR [Concomitant]
     Active Substance: CHLORPHENIRAMINE MALEATE
     Indication: STREPTOCOCCAL SEPSIS
     Dosage: 10 MILLIGRAM
     Route: 041
     Dates: start: 20210224, end: 20210225
  71. G?LASTA [Concomitant]
     Active Substance: PEGFILGRASTIM
     Route: 058
     Dates: start: 20201222, end: 20201222
  72. G?LASTA [Concomitant]
     Active Substance: PEGFILGRASTIM
     Dosage: 3.6 MILLIGRAM
     Route: 058
     Dates: start: 20210525, end: 20210525
  73. HIZENTRA [Concomitant]
     Active Substance: HUMAN IMMUNOGLOBULIN G
     Indication: INFECTION PROPHYLAXIS
     Route: 058
     Dates: start: 20201228, end: 20201228
  74. VALACICLOVIR [Concomitant]
     Active Substance: VALACYCLOVIR HYDROCHLORIDE
     Indication: HERPES ZOSTER
     Dosage: 3000 MILLIGRAM
     Route: 048
     Dates: start: 20210409
  75. VORICONAZOLE. [Concomitant]
     Active Substance: VORICONAZOLE
     Indication: INFECTION PROPHYLAXIS
     Dosage: 150 MILLIGRAM
     Route: 048
     Dates: start: 20210304, end: 20210308
  76. CC?4047 [Suspect]
     Active Substance: POMALIDOMIDE
     Indication: PLASMA CELL MYELOMA
     Dosage: 4 MILLIGRAM
     Route: 048
     Dates: start: 20200324, end: 20200406
  77. LANSOPRAZOLE. [Concomitant]
     Active Substance: LANSOPRAZOLE
     Dosage: 30 MILLIGRAM
     Route: 048
     Dates: start: 20210226, end: 20210310
  78. BAYASPIRIN [Concomitant]
     Active Substance: ASPIRIN
     Dosage: 100 MILLIGRAM
     Route: 048
     Dates: start: 20210326
  79. LYRICA [Concomitant]
     Active Substance: PREGABALIN
     Indication: HERPES ZOSTER
     Dosage: 50 MILLIGRAM
     Route: 048
     Dates: start: 20210226, end: 20210311
  80. CALONAL [Concomitant]
     Active Substance: ACETAMINOPHEN
     Indication: PREMEDICATION
     Route: 048
     Dates: start: 20200324, end: 20210209
  81. NEORESTAR [Concomitant]
     Active Substance: CHLORPHENIRAMINE MALEATE
     Indication: PREMEDICATION
     Route: 041
     Dates: start: 20200324, end: 20210209
  82. NEORESTAR [Concomitant]
     Active Substance: CHLORPHENIRAMINE MALEATE
     Dosage: 10 MILLIGRAM
     Route: 041
     Dates: start: 20210301, end: 20210301
  83. OPSO [Concomitant]
     Active Substance: MORPHINE HYDROCHLORIDE
     Indication: STOMATITIS
     Route: 048
     Dates: start: 20200414, end: 20201019
  84. G?LASTA [Concomitant]
     Active Substance: PEGFILGRASTIM
     Indication: INFECTION PROPHYLAXIS
     Route: 058
     Dates: start: 20200507, end: 20200507
  85. G?LASTA [Concomitant]
     Active Substance: PEGFILGRASTIM
     Route: 058
     Dates: start: 20200901, end: 20200901
  86. G?LASTA [Concomitant]
     Active Substance: PEGFILGRASTIM
     Route: 058
     Dates: start: 20210126, end: 20210126
  87. SOLACET F [Concomitant]
     Active Substance: CALCIUM CHLORIDE\POTASSIUM CHLORIDE\SODIUM ACETATE\SODIUM CHLORIDE
     Indication: STREPTOCOCCAL SEPSIS
     Dosage: 2500 MILLILITER
     Route: 041
     Dates: start: 20210224, end: 20210224
  88. SOLACET F [Concomitant]
     Active Substance: CALCIUM CHLORIDE\POTASSIUM CHLORIDE\SODIUM ACETATE\SODIUM CHLORIDE
     Indication: INFECTION PROPHYLAXIS
     Dosage: 500 MILLILITER
     Route: 041
     Dates: start: 20210225, end: 20210225
  89. TAZOPIPE [Concomitant]
     Active Substance: PIPERACILLIN SODIUM\TAZOBACTAM SODIUM
     Indication: INFECTION PROPHYLAXIS
     Dosage: 4.5 GRAM
     Route: 041
     Dates: start: 20210224, end: 20210224
  90. SOLU?CORTEF [Concomitant]
     Active Substance: HYDROCORTISONE SODIUM SUCCINATE
     Indication: INFECTION PROPHYLAXIS
  91. OMEPRAZOLE. [Concomitant]
     Active Substance: OMEPRAZOLE
     Indication: PROPHYLAXIS AGAINST GASTROINTESTINAL ULCER
     Route: 041
     Dates: start: 20210224, end: 20210224
  92. MAGNESIUM [Concomitant]
     Active Substance: MAGNESIUM
     Indication: MINERAL SUPPLEMENTATION
     Dosage: 20 MILLIEQUIVALENTS
     Route: 041
     Dates: start: 20210308, end: 20210309
  93. SOLDEM [Concomitant]
     Active Substance: DEXTROSE\POTASSIUM CHLORIDE\SODIUM CHLORIDE\SODIUM LACTATE
     Indication: STREPTOCOCCAL SEPSIS
     Dosage: 500 MILLILITER
     Route: 041
     Dates: start: 20210308, end: 20210311
  94. CODEINE PHOSPHATE [Concomitant]
     Active Substance: CODEINE PHOSPHATE
     Indication: STREPTOCOCCAL SEPSIS
     Route: 048
     Dates: start: 20210301, end: 20210425

REACTIONS (1)
  - Pneumonia [Recovered/Resolved]

NARRATIVE: CASE EVENT DATE: 20210629
